FAERS Safety Report 9283786 (Version 1)
Quarter: 2013Q2

REPORT INFORMATION
  Report Type: Spontaneous
  Country: US (occurrence: None)
  Receive Date: 20130506
  Receipt Date: 20130506
  Transmission Date: 20140414
  Serious: Yes (Hospitalization, Other)
  Sender: FDA-Public Use
  Company Number: SYM-2013-03180

PATIENT
  Age: 72 Year
  Sex: Male

DRUGS (5)
  1. DILTIAZEM [Suspect]
  2. LASIX (FUROSEMIDE) (FUROSEMIDE) [Suspect]
  3. XALKORI [Suspect]
  4. LISINOPRIL (LISINOPRIL) (LISINOPRIL) [Suspect]
  5. SIMVASTATIN [Suspect]

REACTIONS (9)
  - Nausea [None]
  - Vomiting [None]
  - Dehydration [None]
  - Renal failure acute [None]
  - Hypotension [None]
  - Respiratory rate increased [None]
  - Diarrhoea [None]
  - Metastases to central nervous system [None]
  - Vasogenic cerebral oedema [None]
